FAERS Safety Report 5590004-8 (Version None)
Quarter: 2008Q1

REPORT INFORMATION
  Report Type: 
  Country: None (occurrence: None)
  Receive Date: 20080114
  Receipt Date: 20061207
  Transmission Date: 20080703
  Serious: No
  Sender: FDA-Public Use
  Company Number: US-ABBOTT-06P-163-0353416-00

PATIENT
  Age: 3 Year
  Sex: Male

DRUGS (2)
  1. OMNICEF [Suspect]
     Indication: PHARYNGITIS STREPTOCOCCAL
  2. OMNICEF [Suspect]
     Indication: SCARLET FEVER

REACTIONS (3)
  - PETECHIAE [None]
  - PURPURA [None]
  - VASCULITIS [None]
